FAERS Safety Report 5808949-X (Version None)
Quarter: 2008Q3

REPORT INFORMATION
  Report Type: 
  Country: None (occurrence: None)
  Receive Date: 20080710
  Receipt Date: 20080710
  Transmission Date: 20090109
  Serious: Yes (Other)
  Sender: FDA-Public Use
  Company Number: None

PATIENT
  Age: 37 Year
  Sex: Female

DRUGS (1)
  1. CREST W/ FLUORIDE [Suspect]
     Indication: DENTAL DISORDER PROPHYLAXIS
     Dates: start: 20080703, end: 20080709

REACTIONS (3)
  - DYSGEUSIA [None]
  - GINGIVAL ERYTHEMA [None]
  - GINGIVAL PAIN [None]
